FAERS Safety Report 11399369 (Version 1)
Quarter: 2015Q3

REPORT INFORMATION
  Report Type: Spontaneous
  Country: US (occurrence: None)
  Receive Date: 20150819
  Receipt Date: 20150819
  Transmission Date: 20151125
  Serious: Yes (Hospitalization, Disabling)
  Sender: FDA-Public Use
  Company Number: None

PATIENT
  Age: 7 Year
  Sex: Male
  Weight: 20.41 kg

DRUGS (1)
  1. BOTOX [Suspect]
     Active Substance: ONABOTULINUMTOXINA
     Indication: DROOLING
     Dosage: 1 TIME SURGERY GIVEN INTO/UNDER THE SKIN

REACTIONS (7)
  - Hydrocephalus [None]
  - Choking [None]
  - Feeding disorder [None]
  - Dehydration [None]
  - Vomiting [None]
  - Fluid intake reduced [None]
  - Dysphagia [None]

NARRATIVE: CASE EVENT DATE: 20120118
